FAERS Safety Report 8417004-4 (Version None)
Quarter: 2012Q2

REPORT INFORMATION
  Report Type: 
  Country: None (occurrence: None)
  Receive Date: 20120606
  Receipt Date: 20100611
  Transmission Date: 20120825
  Serious: Yes (Other)
  Sender: FDA-Public Use
  Company Number: PHHY2010BR38402

PATIENT
  Age: 25 Year
  Sex: Female

DRUGS (4)
  1. INTERFERON [Concomitant]
     Dosage: UNK UKN, UNK
  2. GLEEVEC [Suspect]
     Indication: CHRONIC MYELOID LEUKAEMIA
     Dosage: UNK UKN, UNK
  3. CHEMOTHERAPEUTICS NOS [Concomitant]
     Dosage: UNK UKN, UNK
  4. HYDROXYUREA [Concomitant]
     Dosage: UNK UKN, UNK

REACTIONS (4)
  - WHITE BLOOD CELL COUNT INCREASED [None]
  - TWIN PREGNANCY [None]
  - NORMAL NEWBORN [None]
  - MATERNAL EXPOSURE DURING PREGNANCY [None]
